FAERS Safety Report 21372348 (Version 5)
Quarter: 2023Q2

REPORT INFORMATION
  Report Type: Report from Study
  Country: CN (occurrence: CN)
  Receive Date: 20220924
  Receipt Date: 20230428
  Transmission Date: 20230721
  Serious: Yes (Other)
  Sender: FDA-Public Use
  Company Number: CN-TAKEDA-2022TUS066025

PATIENT
  Age: 63 Year
  Sex: Female
  Weight: 60 kg

DRUGS (21)
  1. IXAZOMIB [Suspect]
     Active Substance: IXAZOMIB
     Indication: Plasma cell myeloma
     Dosage: 4 MILLIGRAM, 1/WEEK
     Route: 048
     Dates: start: 20220402
  2. POMALIDOMIDE [Suspect]
     Active Substance: POMALIDOMIDE
     Indication: Plasma cell myeloma
     Dosage: 4 MILLIGRAM, QD
     Route: 048
     Dates: start: 20220402, end: 20220407
  3. Hepatocyte Growth Promoting Factors [Concomitant]
     Indication: Prophylaxis
     Dosage: 90 MICROGRAM, QD
     Route: 042
     Dates: start: 20220324, end: 20220407
  4. ASIAN GINSENG [Concomitant]
     Active Substance: ASIAN GINSENG
     Indication: Nutritional supplementation
     Dosage: 50 MILLILITER, QD
     Route: 042
     Dates: start: 20220324, end: 20220407
  5. Compound sodium acetate ringer^s [Concomitant]
     Indication: Fluid replacement
     Dosage: 250 MILLILITER, QD
     Route: 042
     Dates: start: 20220324, end: 20220407
  6. HEPARIN SODIUM [Concomitant]
     Active Substance: HEPARIN SODIUM
     Indication: Salpingectomy
     Dosage: UNK UNK, QD
     Route: 042
     Dates: start: 20220324, end: 20220407
  7. MOXALACTAM DISODIUM [Concomitant]
     Active Substance: MOXALACTAM DISODIUM
     Indication: Upper respiratory tract infection
     Dosage: 1.5 GRAM
     Route: 042
     Dates: start: 20220325, end: 20220407
  8. GANCICLOVIR [Concomitant]
     Active Substance: GANCICLOVIR
     Indication: Upper respiratory tract infection
     Dosage: 0.25 GRAM
     Route: 042
     Dates: start: 20220325, end: 20220404
  9. GANCICLOVIR [Concomitant]
     Active Substance: GANCICLOVIR
     Indication: Antiviral treatment
  10. BUDESONIDE [Concomitant]
     Active Substance: BUDESONIDE
     Indication: Upper respiratory tract infection
     Dosage: 1 MILLIGRAM, BID
     Route: 055
     Dates: start: 20220325, end: 20220407
  11. TERBUTALINE SULFATE [Concomitant]
     Active Substance: TERBUTALINE SULFATE
     Indication: Upper respiratory tract infection
     Dosage: 5 MILLIGRAM, BID
     Route: 055
     Dates: start: 20220325, end: 20220407
  12. BORTEZOMIB [Concomitant]
     Active Substance: BORTEZOMIB
     Indication: Plasma cell myeloma
     Dosage: 2.1 MILLIGRAM
     Route: 058
     Dates: start: 20220326, end: 20220331
  13. DEXAMETHASONE SODIUM PHOSPHATE [Concomitant]
     Active Substance: DEXAMETHASONE SODIUM PHOSPHATE
     Indication: Antiallergic therapy
     Dosage: 20 MILLIGRAM
     Route: 042
     Dates: start: 20220402, end: 20220407
  14. ASPIRIN [Concomitant]
     Active Substance: ASPIRIN
     Indication: Anticoagulant therapy
     Dosage: 100 MILLIGRAM, QD
     Route: 048
     Dates: start: 20220326, end: 20220606
  15. LENALIDOMIDE [Concomitant]
     Active Substance: LENALIDOMIDE
     Indication: Plasma cell myeloma
     Dosage: 25 MILLIGRAM, QD
     Route: 048
     Dates: start: 20220326, end: 20220402
  16. CIMETIDINE [Concomitant]
     Active Substance: CIMETIDINE
     Indication: Prophylaxis
     Dosage: 0.4 GRAM, QD
     Route: 042
     Dates: start: 20220402, end: 20220407
  17. VITAMIN B6 [Concomitant]
     Active Substance: PYRIDOXINE HYDROCHLORIDE
     Indication: Vitamin supplementation
     Dosage: 0.2 GRAM, QD
     Route: 042
     Dates: start: 20220402, end: 20220407
  18. ONDANSETRON HYDROCHLORIDE [Concomitant]
     Active Substance: ONDANSETRON HYDROCHLORIDE
     Indication: Prophylaxis of nausea and vomiting
     Dosage: 8 MILLIGRAM, QD
     Route: 048
     Dates: start: 20220404, end: 20220404
  19. DEXAMETHASONE ACETATE [Concomitant]
     Active Substance: DEXAMETHASONE ACETATE
     Indication: Plasma cell myeloma
     Dosage: 0.75 MILLIGRAM, QD
     Route: 048
     Dates: start: 20220404, end: 20220404
  20. MONTMORILLONITE [Concomitant]
     Active Substance: MONTMORILLONITE
     Indication: Diarrhoea
     Dosage: 1 GRAM, TID
     Route: 048
     Dates: start: 20220404, end: 20220409
  21. BACILLUS LICHENIFORMIS CAPSULE,LIVE [Concomitant]
     Indication: Diarrhoea
     Dosage: 0.5 GRAM, TID
     Route: 048
     Dates: start: 20220404, end: 20220409

REACTIONS (13)
  - Deafness unilateral [Not Recovered/Not Resolved]
  - Hypokalaemia [Not Recovered/Not Resolved]
  - Gastrointestinal infection [Recovering/Resolving]
  - Anaemia [Not Recovered/Not Resolved]
  - Platelet count decreased [Recovered/Resolved]
  - Nausea [Recovered/Resolved]
  - Diarrhoea [Recovered/Resolved]
  - Constipation [Recovered/Resolved]
  - Hypoalbuminaemia [Recovered/Resolved]
  - Hypocalcaemia [Recovered/Resolved]
  - Hypertension [Not Recovered/Not Resolved]
  - Vomiting [Recovered/Resolved]
  - Off label use [Unknown]

NARRATIVE: CASE EVENT DATE: 20220405
